FAERS Safety Report 24754389 (Version 2)
Quarter: 2024Q4

REPORT INFORMATION
  Report Type: Spontaneous
  Country: HU (occurrence: HU)
  Receive Date: 20241219
  Receipt Date: 20241220
  Transmission Date: 20250115
  Serious: Yes (Other)
  Sender: NOVARTIS
  Company Number: HU-002147023-NVSC2024HU240373

PATIENT
  Age: 65 Year
  Sex: Female

DRUGS (3)
  1. IMATINIB [Suspect]
     Active Substance: IMATINIB
     Indication: Malignant melanoma
     Dosage: UNK
     Route: 065
     Dates: start: 202307, end: 202407
  2. IMATINIB [Suspect]
     Active Substance: IMATINIB
     Indication: Gastrointestinal stromal tumour
  3. INTERFERON [Concomitant]
     Active Substance: INTERFERON
     Indication: Interferon therapy
     Dosage: UNK
     Route: 065

REACTIONS (3)
  - Malignant melanoma [Unknown]
  - Malignant neoplasm progression [Unknown]
  - Product use in unapproved indication [Unknown]
